FAERS Safety Report 8772339 (Version 1)
Quarter: 2012Q4

REPORT INFORMATION
  Report Type: 
  Country: GB (occurrence: JP)
  Receive Date: 20120906
  Receipt Date: 20120906
  Transmission Date: 20130627
  Serious: Yes (Other)
  Sender: FDA-Public Use
  Company Number: JP-009507513-2012SP017032

PATIENT

DRUGS (12)
  1. PEGINTRON [Suspect]
     Indication: HEPATITIS C
     Dosage: 1.5ug/kg/week
     Route: 058
     Dates: start: 20120216, end: 20120307
  2. PEGINTRON [Suspect]
     Dosage: 1ug/kg/week
     Route: 058
     Dates: start: 20120328, end: 20120404
  3. PEGINTRON [Suspect]
     Dosage: 1.5ug/kg/week
     Route: 058
  4. REBETOL [Suspect]
     Indication: HEPATITIS C
     Dosage: 600 mg, QD
     Route: 048
     Dates: start: 20120216, end: 20120229
  5. REBETOL [Suspect]
     Dosage: 400 mg, QD
     Route: 048
     Dates: start: 20120229, end: 20120307
  6. REBETOL [Suspect]
     Dosage: 200 mg, QD
     Route: 048
     Dates: start: 20120307, end: 20120314
  7. REBETOL [Suspect]
     Dosage: 200 mg, qd
     Route: 048
     Dates: start: 20120404
  8. REBETOL [Suspect]
     Dosage: 400 mg, qd
     Dates: start: 20120606
  9. TELAVIC [Suspect]
     Indication: HEPATITIS C
     Dosage: 2250 mg, QD
     Route: 048
     Dates: start: 20120216, end: 20120314
  10. TELAVIC [Suspect]
     Dosage: 1000 mg, qd
     Route: 048
     Dates: start: 20120404
  11. TELAVIC [Suspect]
     Dosage: 1500 mg, qd
     Route: 048
     Dates: start: 20120425, end: 20120522
  12. ZYLORIC [Concomitant]
     Indication: PROPHYLAXIS
     Dosage: FORMULATION: POR UPDATE(14JUN2012):INDICATION,DOSAGE,FORMULATION,START DATE.
     Route: 048
     Dates: start: 20120220

REACTIONS (1)
  - Anaemia [Not Recovered/Not Resolved]
